FAERS Safety Report 4747311-8 (Version None)
Quarter: 2005Q3

REPORT INFORMATION
  Report Type: 
  Country: None (occurrence: None)
  Receive Date: 20050816
  Receipt Date: 20050803
  Transmission Date: 20060218
  Serious: Yes (Death, Life-Threatening, Hospitalization, Other)
  Sender: FDA-Public Use
  Company Number: 2004106719

PATIENT
  Age: 56 Year
  Sex: Female
  Weight: 58.2872 kg

DRUGS (19)
  1. NEURONTIN [Suspect]
     Indication: NEUROPATHY PERIPHERAL
     Dosage: 1500 MG (300 MG, 5 IN 1 D), ORAL
     Route: 048
     Dates: start: 20010301
  2. DIPHENHYDRAMINE HCL [Suspect]
     Indication: ILL-DEFINED DISORDER
     Dosage: ORAL
     Route: 048
  3. TOPROL (METOPROLOL) [Suspect]
     Indication: ILL-DEFINED DISORDER
     Dosage: 20 MG (1 IN 1 D)
  4. SOMA [Suspect]
     Indication: ILL-DEFINED DISORDER
     Dosage: 350 MG, 1 OR 2 EVERY 4-6 HOURS AS NECESSARY, ORAL
     Route: 048
  5. MEPROBAMATE [Suspect]
     Indication: ILL-DEFINED DISORDER
  6. DILAUDID [Suspect]
     Indication: ILL-DEFINED DISORDER
     Dosage: 4 MG, 1-2 EVERY 4-6 HOURS AS NECESSARY), ORAL
     Route: 048
  7. PREDNISONE [Concomitant]
  8. DURAGESIC-100 [Concomitant]
  9. PLENDIL [Concomitant]
  10. CATAPRES [Concomitant]
  11. ALTACE [Concomitant]
  12. POTASSIUM CHLORIDE [Concomitant]
  13. PREVACID [Concomitant]
  14. CLONAZEPAM [Concomitant]
  15. URSODIOL (URSODEOXYCHOLIC ACID) [Concomitant]
  16. STARLIX [Concomitant]
  17. LORAZEPAM [Concomitant]
  18. ALBUTEROL [Concomitant]
  19. LASIX [Concomitant]

REACTIONS (39)
  - AGGRESSION [None]
  - ARTHROPATHY [None]
  - ASTHENIA [None]
  - BACK PAIN [None]
  - COMPLETED SUICIDE [None]
  - CONVULSION [None]
  - DEPRESSED LEVEL OF CONSCIOUSNESS [None]
  - DEPRESSION [None]
  - DIZZINESS [None]
  - DRUG INEFFECTIVE [None]
  - DRUG TOXICITY [None]
  - ELECTROENCEPHALOGRAM ABNORMAL [None]
  - EXOSTOSIS [None]
  - FALL [None]
  - FATIGUE [None]
  - HEADACHE [None]
  - IMPINGEMENT SYNDROME [None]
  - INJURY [None]
  - INTERVERTEBRAL DISC INJURY [None]
  - INTERVERTEBRAL DISC PROTRUSION [None]
  - JOINT ANKYLOSIS [None]
  - LIGAMENT INJURY [None]
  - LIMB INJURY [None]
  - MEDICAL DEVICE PAIN [None]
  - MULTIPLE DRUG OVERDOSE [None]
  - OSTEOARTHRITIS [None]
  - PERIARTHRITIS [None]
  - PROCEDURAL PAIN [None]
  - PSEUDARTHROSIS [None]
  - SELF INJURIOUS BEHAVIOUR [None]
  - SHOULDER PAIN [None]
  - SOCIAL PROBLEM [None]
  - SOMNOLENCE [None]
  - SPINAL COLUMN STENOSIS [None]
  - SPONDYLITIC MYELOPATHY [None]
  - SYNOVIAL CYST [None]
  - TENDON DISORDER [None]
  - TENDONITIS [None]
  - TREMOR [None]
